FAERS Safety Report 18267747 (Version 5)
Quarter: 2021Q1

REPORT INFORMATION
  Report Type: Spontaneous
  Country: FR (occurrence: FR)
  Receive Date: 20200915
  Receipt Date: 20210119
  Transmission Date: 20210419
  Serious: Yes (Life-Threatening, Hospitalization, Other)
  Sender: FDA-Public Use
  Company Number: FR-PFIZER INC-2020353661

PATIENT
  Age: 66 Year
  Sex: Male
  Weight: 81 kg

DRUGS (18)
  1. MEKTOVI [Suspect]
     Active Substance: BINIMETINIB
     Indication: METASTATIC MALIGNANT MELANOMA
     Dosage: 45 MG, 2X/DAY
     Route: 048
     Dates: start: 20190814, end: 20200724
  2. XARELTO [Concomitant]
     Active Substance: RIVAROXABAN
     Dosage: 20 MG/24H
     Dates: end: 202007
  3. METFORMINE [METFORMIN] [Concomitant]
     Active Substance: METFORMIN HYDROCHLORIDE
     Indication: TYPE 2 DIABETES MELLITUS
     Dosage: 850 MG, 2X/DAY
     Dates: end: 202007
  4. ALLOPURINOL. [Concomitant]
     Active Substance: ALLOPURINOL
     Indication: GOUT
     Dosage: 300 MG/24H
  5. COUMADINE [Concomitant]
     Active Substance: WARFARIN SODIUM
     Indication: ANTICOAGULANT THERAPY
     Dosage: 4 MG, 1X/DAY
  6. MEKTOVI [Suspect]
     Active Substance: BINIMETINIB
     Dosage: 45 MG, 2X/DAY
     Route: 048
     Dates: start: 20200818
  7. BRAFTOVI [Suspect]
     Active Substance: ENCORAFENIB
     Dosage: 150 MG, 1X/DAY
     Route: 048
     Dates: end: 20200908
  8. MEKTOVI [Suspect]
     Active Substance: BINIMETINIB
     Dosage: 15 MG, 2X/DAY
     Route: 048
     Dates: end: 20200908
  9. ALLOPURINOL. [Concomitant]
     Active Substance: ALLOPURINOL
     Dosage: 100 MG, DAILY
  10. BISOPROLOL [Concomitant]
     Active Substance: BISOPROLOL
     Dosage: 10 MG/24H
  11. COAPROVEL [Concomitant]
     Active Substance: HYDROCHLOROTHIAZIDE\IRBESARTAN
     Indication: HYPERTENSION
     Dosage: 1 DF, 1X/DAY
  12. SODIUM BICARBONATE. [Concomitant]
     Active Substance: SODIUM BICARBONATE
     Dosage: 2 DF, 1X/DAY
     Route: 065
  13. BRAFTOVI [Suspect]
     Active Substance: ENCORAFENIB
     Dosage: 450 MG, 1X/DAY
     Route: 048
     Dates: start: 20200818
  14. ROSUVASTATINE [ROSUVASTATIN] [Concomitant]
     Active Substance: ROSUVASTATIN
     Dosage: 10 MG/24H
  15. BRAFTOVI [Suspect]
     Active Substance: ENCORAFENIB
     Indication: METASTATIC MALIGNANT MELANOMA
     Dosage: 450 MG, 1X/DAY
     Route: 048
     Dates: start: 20190814, end: 20200724
  16. AMLOR [Concomitant]
     Active Substance: AMLODIPINE BESYLATE
     Dosage: 10 MG/24H
  17. PEMBROLIZUMAB. [Concomitant]
     Active Substance: PEMBROLIZUMAB
     Indication: METASTATIC MALIGNANT MELANOMA
     Dosage: UNK
     Route: 065
     Dates: start: 20200818
  18. CONTRAST MEDIA [Concomitant]
     Active Substance: UNSPECIFIED INGREDIENT
     Indication: COMPUTERISED TOMOGRAM
     Dosage: UNK
     Dates: start: 20200610, end: 20200610

REACTIONS (11)
  - Acute kidney injury [Recovered/Resolved]
  - Off label use [Unknown]
  - Photosensitivity reaction [Unknown]
  - Pruritus [Unknown]
  - Kidney fibrosis [Unknown]
  - Vomiting [Recovered/Resolved]
  - General physical health deterioration [Unknown]
  - Nausea [Recovered/Resolved]
  - Renal tubular necrosis [Unknown]
  - Synovitis [Unknown]
  - Aplastic anaemia [Unknown]

NARRATIVE: CASE EVENT DATE: 2020
